FAERS Safety Report 25444677 (Version 1)
Quarter: 2025Q2

REPORT INFORMATION
  Report Type: Spontaneous
  Country: US (occurrence: US)
  Receive Date: 20250617
  Receipt Date: 20250617
  Transmission Date: 20250716
  Serious: Yes (Hospitalization)
  Sender: CHEPLAPHARM
  Company Number: US-CHEPLA-2025007364

PATIENT
  Age: 50 Year
  Sex: Male

DRUGS (7)
  1. VALGANCICLOVIR [Suspect]
     Active Substance: VALGANCICLOVIR
     Indication: Cytomegalovirus viraemia
  2. VALGANCICLOVIR [Suspect]
     Active Substance: VALGANCICLOVIR
     Indication: Cytomegalovirus viraemia
     Dosage: DAILY DOSE: 900 MILLIGRAM
  3. IMMUNOGLOBULIN [Concomitant]
     Indication: Immunodeficiency common variable
     Route: 042
  4. SULFAMETHOXAZOLE\TRIMETHOPRIM [Concomitant]
     Active Substance: SULFAMETHOXAZOLE\TRIMETHOPRIM
     Indication: Antifungal prophylaxis
  5. PREDNISONE [Concomitant]
     Active Substance: PREDNISONE
     Indication: Myopathy
  6. FOSCARNET [Concomitant]
     Active Substance: FOSCARNET
     Indication: Cytomegalovirus viraemia
     Dosage: DAILY DOSE: 10000 MILLIGRAM
     Route: 042
  7. MARIBAVIR [Concomitant]
     Active Substance: MARIBAVIR
     Indication: Cytomegalovirus viraemia
     Route: 048

REACTIONS (4)
  - Bronchiectasis [Recovering/Resolving]
  - Drug resistance [Unknown]
  - Pneumonia cytomegaloviral [Unknown]
  - Off label use [Unknown]
